FAERS Safety Report 9961458 (Version 2)
Quarter: 2014Q2

REPORT INFORMATION
  Report Type: Spontaneous
  Country: BR (occurrence: BR)
  Receive Date: 20140305
  Receipt Date: 20140410
  Transmission Date: 20141212
  Serious: Yes (Other)
  Sender: FDA-Public Use
  Company Number: BR-SA-2014SA023223

PATIENT
  Age: 59 Year
  Sex: Male
  Weight: 106 kg

DRUGS (7)
  1. LANTUS [Suspect]
     Indication: TYPE 2 DIABETES MELLITUS
     Route: 058
     Dates: start: 2005
  2. DEVICE NOS [Concomitant]
     Indication: DEVICE THERAPY
  3. GLIMEPIRIDE [Concomitant]
     Indication: TYPE 2 DIABETES MELLITUS
     Route: 048
  4. GLIFAGE [Concomitant]
     Indication: TYPE 2 DIABETES MELLITUS
     Route: 048
  5. AAS INFANTIL [Concomitant]
  6. ALL OTHER THERAPEUTIC PRODUCTS [Concomitant]
  7. METFORMIN [Concomitant]

REACTIONS (11)
  - Cardiac disorder [Not Recovered/Not Resolved]
  - Retinal detachment [Recovered/Resolved]
  - Blindness unilateral [Recovered/Resolved]
  - Blindness [Unknown]
  - Catheter placement [Recovered/Resolved]
  - Cholelithiasis [Not Recovered/Not Resolved]
  - Arterial disorder [Unknown]
  - Visual impairment [Unknown]
  - Hypoglycaemia [Not Recovered/Not Resolved]
  - Hyperglycaemia [Not Recovered/Not Resolved]
  - Off label use [Unknown]
